FAERS Safety Report 5299032-3 (Version None)
Quarter: 2007Q2

REPORT INFORMATION
  Report Type: 
  Country: None (occurrence: None)
  Receive Date: 20070417
  Receipt Date: 20070409
  Transmission Date: 20071010
  Serious: Yes (Other)
  Sender: FDA-Public Use
  Company Number: US-GENENTECH-239720

PATIENT
  Sex: Female

DRUGS (7)
  1. AVASTIN [Suspect]
     Indication: COLORECTAL CANCER METASTATIC
     Dosage: 5 MG/KG, Q2W
     Route: 042
     Dates: start: 20040201, end: 20050201
  2. AVASTIN [Suspect]
     Dosage: 5 MG/KG, Q2W
     Route: 042
  3. FLUOROURACIL [Concomitant]
     Indication: COLORECTAL CANCER METASTATIC
  4. FOLINIC ACID [Concomitant]
     Indication: COLORECTAL CANCER METASTATIC
  5. OXALIPLATIN [Concomitant]
     Indication: COLORECTAL CANCER METASTATIC
  6. CETUXIMAB [Concomitant]
     Indication: COLORECTAL CANCER METASTATIC
  7. IRINOTECAN HCL [Concomitant]
     Indication: COLORECTAL CANCER METASTATIC

REACTIONS (3)
  - HAEMATURIA [None]
  - PROTEINURIA [None]
  - RENAL DISORDER [None]
